FAERS Safety Report 15747410 (Version 1)
Quarter: 2018Q4

REPORT INFORMATION
  Report Type: Other
  Country: CZ (occurrence: CZ)
  Receive Date: 20181220
  Receipt Date: 20181220
  Transmission Date: 20190205
  Serious: Yes (Life-Threatening, Hospitalization, Disabling)
  Sender: FDA-Public Use
  Company Number: CZ-NOSTRUM LABORATORIES, INC.-2060466

PATIENT
  Age: 67 Year
  Sex: Female

DRUGS (1)
  1. METFORMIN HYDROCHLORIDE EXTENDED-RELEASE [Suspect]
     Active Substance: METFORMIN HYDROCHLORIDE
     Indication: TYPE 2 DIABETES MELLITUS
     Route: 048

REACTIONS (6)
  - Cardiac arrest [Recovered/Resolved]
  - Pneumonia [Recovered/Resolved]
  - Acute kidney injury [Recovered/Resolved]
  - Blindness unilateral [Not Recovered/Not Resolved]
  - Lactic acidosis [Recovered/Resolved]
  - Acute respiratory failure [Recovered/Resolved]
